FAERS Safety Report 18206826 (Version 2)
Quarter: 2021Q1

REPORT INFORMATION
  Report Type: Report from Study
  Country: None (occurrence: FR)
  Receive Date: 20200828
  Receipt Date: 20210216
  Transmission Date: 20210419
  Serious: Yes (Other)
  Sender: FDA-Public Use
  Company Number: FR-ABBVIE-20K-056-3338243-00

PATIENT
  Age: 62 Year
  Sex: Male
  Weight: 98 kg

DRUGS (14)
  1. VENCLYXTO [Suspect]
     Active Substance: VENETOCLAX
     Route: 048
     Dates: start: 20190730, end: 20190805
  2. BLEOMYCIN [Concomitant]
     Active Substance: BLEOMYCIN SULFATE
     Indication: PRODUCT USED FOR UNKNOWN INDICATION
     Dates: start: 20200323, end: 20200629
  3. DACARBAZINE. [Concomitant]
     Active Substance: DACARBAZINE
     Indication: RICHTER^S SYNDROME
     Dates: start: 20200323, end: 20200629
  4. VENCLYXTO [Suspect]
     Active Substance: VENETOCLAX
     Indication: CHRONIC LYMPHOCYTIC LEUKAEMIA
     Route: 048
     Dates: start: 20190723, end: 20190729
  5. VENCLYXTO [Suspect]
     Active Substance: VENETOCLAX
     Route: 048
     Dates: start: 20190820, end: 202003
  6. VENCLYXTO [Suspect]
     Active Substance: VENETOCLAX
     Route: 048
     Dates: start: 20190813, end: 20190819
  7. RITUXIMAB. [Concomitant]
     Active Substance: RITUXIMAB
     Indication: RICHTER^S SYNDROME
     Dates: start: 20200323, end: 20200629
  8. DACARBAZINE. [Concomitant]
     Active Substance: DACARBAZINE
     Indication: RICHTER^S SYNDROME
  9. RITUXIMAB. [Concomitant]
     Active Substance: RITUXIMAB
     Indication: RICHTER^S SYNDROME
  10. VENCLYXTO [Suspect]
     Active Substance: VENETOCLAX
     Route: 048
     Dates: start: 20190806, end: 20190812
  11. ADRIAMYCIN [Concomitant]
     Active Substance: DOXORUBICIN HYDROCHLORIDE
     Indication: RICHTER^S SYNDROME
     Dates: start: 20200323, end: 20200629
  12. ADRIAMYCIN [Concomitant]
     Active Substance: DOXORUBICIN HYDROCHLORIDE
     Indication: RICHTER^S SYNDROME
  13. VINBLASTINE [Concomitant]
     Active Substance: VINBLASTINE
     Indication: RICHTER^S SYNDROME
     Dates: start: 20200323, end: 20200629
  14. VINBLASTINE [Concomitant]
     Active Substance: VINBLASTINE
     Indication: RICHTER^S SYNDROME

REACTIONS (3)
  - Neutropenia [Recovered/Resolved]
  - Chronic lymphocytic leukaemia [Unknown]
  - Richter^s syndrome [Not Recovered/Not Resolved]

NARRATIVE: CASE EVENT DATE: 20190823
